FAERS Safety Report 5140968-1 (Version None)
Quarter: 2006Q4

REPORT INFORMATION
  Report Type: 
  Country: None (occurrence: None)
  Receive Date: 20061027
  Receipt Date: 20061027
  Transmission Date: 20070319
  Serious: Yes (Life-Threatening, Hospitalization, Other)
  Sender: FDA-Public Use
  Company Number: None

PATIENT
  Age: 66 Year
  Sex: Male
  Weight: 84.369 kg

DRUGS (2)
  1. EZETIMIBE/SIMVASTATIN  10 MG/80 MG [Suspect]
     Indication: HYPERLIPIDAEMIA
     Dosage: 10 MG/80 MG DAILY PO
     Route: 048
     Dates: start: 20060718, end: 20060819
  2. GEMFIBROZIL [Suspect]
     Indication: HYPERTRIGLYCERIDAEMIA
     Dosage: 600 MG BID PO
     Route: 048
     Dates: start: 20000323, end: 20060819

REACTIONS (7)
  - BLOOD AMYLASE INCREASED [None]
  - ELECTROCARDIOGRAM T WAVE PEAKED [None]
  - HAEMODIALYSIS [None]
  - HYPERKALAEMIA [None]
  - LIPASE INCREASED [None]
  - RENAL FAILURE ACUTE [None]
  - RHABDOMYOLYSIS [None]
